FAERS Safety Report 6481329-2 (Version None)
Quarter: 2009Q4

REPORT INFORMATION
  Report Type: 
  Country: None (occurrence: None)
  Receive Date: 20091208
  Receipt Date: 20091202
  Transmission Date: 20100525
  Serious: Yes (Life-Threatening, Hospitalization)
  Sender: FDA-Public Use
  Company Number: B0572393B

PATIENT
  Sex: Female
  Weight: 49.4 kg

DRUGS (3)
  1. LAPATINIB [Suspect]
     Indication: BREAST CANCER
     Dosage: 1250MG PER DAY
     Route: 048
     Dates: start: 20090414, end: 20090630
  2. PACLITAXEL [Suspect]
     Indication: BREAST CANCER
     Dosage: 260MG EVERY 3 WEEKS
     Route: 042
     Dates: start: 20090414
  3. MYOCET [Suspect]
     Indication: BREAST CANCER
     Dosage: 90MG EVERY 3 WEEKS
     Route: 042
     Dates: start: 20090414

REACTIONS (2)
  - NEUTROPENIA [None]
  - THROMBOCYTOPENIA [None]
